FAERS Safety Report 23400831 (Version 1)
Quarter: 2024Q1

REPORT INFORMATION
  Report Type: Spontaneous
  Country: FR (occurrence: FR)
  Receive Date: 20240115
  Receipt Date: 20240115
  Transmission Date: 20240410
  Serious: Yes (Life-Threatening)
  Sender: FDA-Public Use
  Company Number: None

PATIENT
  Age: 56 Year
  Sex: Female
  Weight: 65 kg

DRUGS (4)
  1. JARDIANCE [Suspect]
     Active Substance: EMPAGLIFLOZIN
     Indication: Intentional overdose
     Route: 048
     Dates: start: 20230416, end: 20230416
  2. METFORMIN HYDROCHLORIDE [Suspect]
     Active Substance: METFORMIN HYDROCHLORIDE
     Indication: Intentional overdose
     Route: 048
     Dates: start: 20230416, end: 20230416
  3. FLECAINIDE [Concomitant]
     Active Substance: FLECAINIDE
     Indication: Intentional overdose
     Route: 048
     Dates: start: 20230416, end: 20230416
  4. BISOPROLOL FUMARATE [Concomitant]
     Active Substance: BISOPROLOL FUMARATE
     Indication: Intentional overdose
     Route: 048
     Dates: start: 20230416, end: 20230416

REACTIONS (1)
  - Lactic acidosis [Recovered/Resolved]

NARRATIVE: CASE EVENT DATE: 20230416
